FAERS Safety Report 14564899 (Version 5)
Quarter: 2018Q3

REPORT INFORMATION
  Report Type: Report from Study
  Country: GB (occurrence: GB)
  Receive Date: 20180223
  Receipt Date: 20180927
  Transmission Date: 20181010
  Serious: Yes (Hospitalization)
  Sender: FDA-Public Use
  Company Number: GB-ROCHE-2064324

PATIENT
  Sex: Female

DRUGS (6)
  1. PREDNISOLONE. [Concomitant]
     Active Substance: PREDNISOLONE
  2. ROACTEMRA [Suspect]
     Active Substance: TOCILIZUMAB
     Route: 058
     Dates: start: 20180112
  3. TAMIFLU [Suspect]
     Active Substance: OSELTAMIVIR PHOSPHATE
     Indication: PRODUCT USED FOR UNKNOWN INDICATION
     Route: 065
  4. OMEPRAZOLE. [Concomitant]
     Active Substance: OMEPRAZOLE
  5. ROACTEMRA [Suspect]
     Active Substance: TOCILIZUMAB
     Indication: RHEUMATOID ARTHRITIS
     Route: 058
     Dates: start: 20180108
  6. DOXYCYCLINE. [Concomitant]
     Active Substance: DOXYCYCLINE

REACTIONS (17)
  - Cough [Unknown]
  - Ill-defined disorder [Unknown]
  - Headache [Unknown]
  - Myalgia [Unknown]
  - Influenza [Unknown]
  - Musculoskeletal pain [Unknown]
  - Nasopharyngitis [Unknown]
  - Feeling abnormal [Unknown]
  - Back pain [Unknown]
  - Malaise [Unknown]
  - Oropharyngeal pain [Unknown]
  - Insomnia [Unknown]
  - Injection site pain [Unknown]
  - Pain [Unknown]
  - Dyspnoea [Unknown]
  - Respiratory disorder [Unknown]
  - Arthralgia [Unknown]
